FAERS Safety Report 7407724-2 (Version None)
Quarter: 2011Q2

REPORT INFORMATION
  Report Type: 
  Country: None (occurrence: None)
  Receive Date: 20110412
  Receipt Date: 20110329
  Transmission Date: 20111010
  Serious: Yes (Congenital Anomaly)
  Sender: FDA-Public Use
  Company Number: BE-MYLANLABS-2011S1006695

PATIENT
  Sex: Male

DRUGS (4)
  1. CYCLOPHOSPHAMIDE [Suspect]
     Indication: BREAST CANCER
     Route: 064
  2. EPIRUBICIN [Suspect]
     Indication: BREAST CANCER
     Route: 064
  3. FLUOROURACIL [Suspect]
     Indication: BREAST CANCER
     Route: 064
  4. METHOTREXATE [Suspect]
     Indication: BREAST CANCER
     Route: 064

REACTIONS (6)
  - SYNDACTYLY [None]
  - CONGENITAL MUSCULOSKELETAL ANOMALY [None]
  - MULTIPLE CONGENITAL ABNORMALITIES [None]
  - MICROGNATHIA [None]
  - DRUG EXPOSURE DURING PREGNANCY [None]
  - CLINODACTYLY [None]
